FAERS Safety Report 16363848 (Version 2)
Quarter: 2019Q2

REPORT INFORMATION
  Report Type: Report from Study
  Country: US (occurrence: US)
  Receive Date: 20190528
  Receipt Date: 20190603
  Transmission Date: 20190711
  Serious: Yes (Other)
  Sender: FDA-Public Use
  Company Number: US-PFIZER INC-2019221727

PATIENT

DRUGS (1)
  1. KETAMINE HCL [Suspect]
     Active Substance: KETAMINE HYDROCHLORIDE
     Indication: DELIRIUM
     Dosage: UNK
     Route: 030
     Dates: start: 2017, end: 2017

REACTIONS (1)
  - Salivary hypersecretion [Unknown]

NARRATIVE: CASE EVENT DATE: 2017
